FAERS Safety Report 24700809 (Version 1)
Quarter: 2024Q4

REPORT INFORMATION
  Report Type: Spontaneous
  Country: US (occurrence: None)
  Receive Date: 20241204
  Receipt Date: 20241204
  Transmission Date: 20250114
  Serious: Yes (Hospitalization)
  Sender: Public
  Company Number: None

PATIENT
  Sex: Female

DRUGS (1)
  1. PIRFENIDONE [Suspect]
     Active Substance: PIRFENIDONE
     Indication: Interstitial lung disease
     Dosage: OTHER QUANTITY : TAKE 1 CAPSULE;?FREQUENCY : 3 TIMES A DAY;?
     Route: 048
     Dates: start: 202410

REACTIONS (2)
  - Hip fracture [None]
  - Therapy interrupted [None]
